FAERS Safety Report 22256185 (Version 1)
Quarter: 2023Q2

REPORT INFORMATION
  Report Type: Spontaneous
  Country: US (occurrence: None)
  Receive Date: 20230425
  Receipt Date: 20230425
  Transmission Date: 20230721
  Serious: Yes (Hospitalization)
  Sender: FDA-Public Use
  Company Number: None

PATIENT
  Age: 57 Year
  Sex: Male

DRUGS (7)
  1. BOTOX [Suspect]
     Active Substance: ONABOTULINUMTOXINA
     Indication: Muscle spasms
     Dosage: 100 UNIT INJECTION??MD TO INJECT 300 UNITS IN THE MUSCLES OF UPPER EXTYREMITIES EVERY 90 DAYS IN PHY
     Route: 058
     Dates: start: 20211110
  2. BOTOX [Suspect]
     Active Substance: ONABOTULINUMTOXINA
     Dosage: OTHER QUANTITY : 300 UNITS;?OTHER FREQUENCY : EVERY 90 DAYS;?
     Route: 058
  3. ALEVE [Concomitant]
     Active Substance: NAPROXEN SODIUM
  4. BACLOFEN [Concomitant]
     Active Substance: BACLOFEN
  5. MELATONIN [Concomitant]
  6. OCREVUS [Concomitant]
     Active Substance: OCRELIZUMAB
  7. TEMAZEPAM [Concomitant]
     Active Substance: TEMAZEPAM

REACTIONS (1)
  - Blood urine present [None]

NARRATIVE: CASE EVENT DATE: 20230401
